FAERS Safety Report 6704005-7 (Version None)
Quarter: 2010Q2

REPORT INFORMATION
  Report Type: 
  Country: None (occurrence: None)
  Receive Date: 20100430
  Receipt Date: 20100223
  Transmission Date: 20101027
  Serious: Yes (Death)
  Sender: FDA-Public Use
  Company Number: US-ROCHE-700244

PATIENT
  Sex: Male
  Weight: 71.7 kg

DRUGS (1)
  1. CAPECITABINE [Suspect]
     Dosage: ROUTE: MOUTH; INDICATION: PANCREATIC
     Route: 048
     Dates: start: 20090320, end: 20100201

REACTIONS (1)
  - DEATH [None]
